FAERS Safety Report 5123822-0 (Version None)
Quarter: 2006Q4

REPORT INFORMATION
  Report Type: 
  Country: None (occurrence: None)
  Receive Date: 20061010
  Receipt Date: 20060831
  Transmission Date: 20070319
  Serious: Yes (Hospitalization)
  Sender: FDA-Public Use
  Company Number: JP-SP-2006-02339

PATIENT
  Age: 81 Year
  Sex: Male

DRUGS (9)
  1. IMMUCYST [Suspect]
     Indication: BLADDER CANCER
     Route: 043
     Dates: start: 20051020, end: 20051202
  2. IMMUCYST [Suspect]
     Route: 043
     Dates: start: 20051020, end: 20051202
  3. GLIMEPIRIDE [Concomitant]
     Route: 048
  4. METFORMIN HYDROCHLORIDE [Concomitant]
     Route: 048
  5. SODIUM AZULENE SULFONATE-L-GLUTAMINE [Concomitant]
     Route: 048
  6. ENALAPRIL MALEATE [Concomitant]
     Route: 048
  7. BENIDIPINE HYDROCHLORIDE [Concomitant]
     Route: 048
  8. DIGOXIN [Concomitant]
     Route: 048
  9. ZOPICLONE [Concomitant]
     Route: 048

REACTIONS (4)
  - CYSTITIS [None]
  - DYSURIA [None]
  - HAEMATURIA [None]
  - URINARY RETENTION [None]
